FAERS Safety Report 7121407-8 (Version None)
Quarter: 2010Q4

REPORT INFORMATION
  Report Type: 
  Country: None (occurrence: None)
  Receive Date: 20101124
  Receipt Date: 20101111
  Transmission Date: 20110411
  Serious: Yes (Hospitalization)
  Sender: FDA-Public Use
  Company Number: PHHY2010MT76402

PATIENT
  Age: 88 Year
  Sex: Female

DRUGS (1)
  1. CATAFLAM [Suspect]
     Dosage: 50 MG, UNK
     Route: 048
     Dates: start: 20100101, end: 20100101

REACTIONS (1)
  - TRANSIENT ISCHAEMIC ATTACK [None]
